APPROVED DRUG PRODUCT: BENZPHETAMINE HYDROCHLORIDE
Active Ingredient: BENZPHETAMINE HYDROCHLORIDE
Strength: 50MG
Dosage Form/Route: TABLET;ORAL
Application: A040845 | Product #001
Applicant: IMPAX LABORATORIES INC
Approved: Nov 18, 2008 | RLD: No | RS: No | Type: DISCN